FAERS Safety Report 16301941 (Version 1)
Quarter: 2019Q2

REPORT INFORMATION
  Report Type: Spontaneous
  Country: ES (occurrence: ES)
  Receive Date: 20190512
  Receipt Date: 20190512
  Transmission Date: 20190711
  Serious: Yes (Hospitalization)
  Sender: FDA-Public Use
  Company Number: PHHY2019ES106644

PATIENT
  Age: 78 Year
  Sex: Male

DRUGS (5)
  1. SIROLIMUS. [Concomitant]
     Active Substance: SIROLIMUS
     Indication: LIVER TRANSPLANT
     Dosage: 2 MG, QD
     Route: 048
     Dates: start: 200607
  2. FUROSEMIDA [Concomitant]
     Active Substance: FUROSEMIDE
     Indication: OEDEMA
     Dosage: 40 MG, QD
     Route: 048
     Dates: start: 2013
  3. ALOPURINOL [Suspect]
     Active Substance: ALLOPURINOL
     Indication: HYPERURICAEMIA
     Dosage: 100 MG, QD
     Route: 048
     Dates: start: 201705
  4. ACENOCUMAROL [Interacting]
     Active Substance: ACENOCOUMAROL
     Indication: ATRIAL FIBRILLATION
     Dosage: UNK
     Route: 048
  5. PARICALCITOL. [Concomitant]
     Active Substance: PARICALCITOL
     Indication: LIVER TRANSPLANT
     Dosage: 1 UG, QD
     Route: 048
     Dates: start: 2017

REACTIONS (1)
  - Haemorrhage intracranial [Recovered/Resolved with Sequelae]

NARRATIVE: CASE EVENT DATE: 20190119
